FAERS Safety Report 15114692 (Version 2)
Quarter: 2018Q3

REPORT INFORMATION
  Report Type: Spontaneous
  Country: US (occurrence: US)
  Receive Date: 20180706
  Receipt Date: 20180801
  Transmission Date: 20181010
  Serious: No
  Sender: FDA-Public Use
  Company Number: US-GLAXOSMITHKLINE-US2018114644

PATIENT
  Age: 37 Year
  Sex: Female

DRUGS (4)
  1. ABREVA [Suspect]
     Active Substance: DOCOSANOL
     Dosage: USED 5?6 TIMES A DAY
     Dates: start: 20180612, end: 20180619
  2. ABREVA [Suspect]
     Active Substance: DOCOSANOL
     Indication: ORAL HERPES
     Dosage: UNK
  3. ABREVA [Suspect]
     Active Substance: DOCOSANOL
     Dosage: UNK
  4. ABREVA [Suspect]
     Active Substance: DOCOSANOL
     Indication: ORAL HERPES
     Dosage: USED 5?6 TIMES A DAY
     Dates: start: 20180612, end: 20180619

REACTIONS (7)
  - Condition aggravated [Recovered/Resolved]
  - Inappropriate schedule of drug administration [Unknown]
  - Application site reaction [Recovered/Resolved]
  - Oral herpes [Recovered/Resolved]
  - Application site rash [Recovered/Resolved]
  - Lip swelling [Recovered/Resolved]
  - Product quality issue [Unknown]

NARRATIVE: CASE EVENT DATE: 20180612
